FAERS Safety Report 16904485 (Version 1)
Quarter: 2019Q4

REPORT INFORMATION
  Report Type: Spontaneous
  Country: US (occurrence: US)
  Receive Date: 20191009
  Receipt Date: 20191009
  Transmission Date: 20200122
  Serious: Yes (Congenital Anomaly)
  Sender: FDA-Public Use
  Company Number: None

PATIENT
  Age: 37 Year
  Sex: Female
  Weight: 59.85 kg

DRUGS (1)
  1. ESCITALOPRAM [Suspect]
     Active Substance: ESCITALOPRAM OXALATE
     Indication: DEPRESSION
     Dosage: ?          QUANTITY:1 TABLET(S);?
     Route: 048
     Dates: start: 20040505

REACTIONS (5)
  - Maternal drugs affecting foetus [None]
  - Craniosynostosis [None]
  - Autism spectrum disorder [None]
  - Attention deficit/hyperactivity disorder [None]
  - Maternal exposure during pregnancy [None]

NARRATIVE: CASE EVENT DATE: 20140714
